FAERS Safety Report 9014366 (Version 2)
Quarter: 2013Q1

REPORT INFORMATION
  Report Type: Spontaneous
  Country: US (occurrence: US)
  Receive Date: 20130115
  Receipt Date: 20130226
  Transmission Date: 20140127
  Serious: No
  Sender: FDA-Public Use
  Company Number: US-PFIZER INC-2013014443

PATIENT
  Age: 74 Year
  Sex: Male

DRUGS (7)
  1. SUTENT [Suspect]
     Indication: PANCREATIC CARCINOMA
     Dosage: 12.5 MG, UNK
     Dates: start: 20121228
  2. ACETYLSALICYLIC ACID [Concomitant]
     Dosage: UNK
  3. METFORMIN HYDROCHLORIDE [Concomitant]
     Dosage: UNK
  4. METOPROLOL TARTRATE [Concomitant]
     Dosage: UNK
  5. ONE-A-DAY [Concomitant]
     Dosage: UNK
  6. PROSCAR [Concomitant]
     Dosage: UNK
  7. SIMVASTATIN [Concomitant]
     Dosage: UNK

REACTIONS (2)
  - Nausea [Recovered/Resolved]
  - Headache [Recovered/Resolved]
